FAERS Safety Report 15159730 (Version 4)
Quarter: 2018Q4

REPORT INFORMATION
  Report Type: Spontaneous
  Country: US (occurrence: US)
  Receive Date: 20180718
  Receipt Date: 20181204
  Transmission Date: 20190204
  Serious: Yes (Hospitalization, Other)
  Sender: FDA-Public Use
  Company Number: US-SA-2018SA193412

PATIENT
  Age: 48 Year
  Sex: Female

DRUGS (14)
  1. ZYRTEC [Concomitant]
     Active Substance: CETIRIZINE HYDROCHLORIDE
     Dosage: UNK
  2. ARICEPT [Concomitant]
     Active Substance: DONEPEZIL HYDROCHLORIDE
     Dosage: UNK
     Dates: start: 20150801
  3. SUMATRIPTAN. [Concomitant]
     Active Substance: SUMATRIPTAN
  4. AMPYRA [Suspect]
     Active Substance: DALFAMPRIDINE
     Indication: COGNITIVE DISORDER
  5. CITALOPRAM [Concomitant]
     Active Substance: CITALOPRAM HYDROBROMIDE
     Dosage: UNK
     Dates: start: 2008
  6. AUBAGIO [Suspect]
     Active Substance: TERIFLUNOMIDE
     Indication: MULTIPLE SCLEROSIS
     Dosage: 14 MG, QD
     Route: 048
     Dates: start: 20180223
  7. TECFIDERA [Suspect]
     Active Substance: DIMETHYL FUMARATE
     Indication: MULTIPLE SCLEROSIS
     Dosage: 240 MG, BID
     Route: 048
     Dates: start: 201509, end: 20151027
  8. SOLU-MEDROL [Suspect]
     Active Substance: METHYLPREDNISOLONE SODIUM SUCCINATE
     Indication: MULTIPLE SCLEROSIS RELAPSE
     Dosage: UNK
     Route: 042
  9. HYDROCHLOROTHIAZIDE. [Concomitant]
     Active Substance: HYDROCHLOROTHIAZIDE
  10. AMPYRA [Suspect]
     Active Substance: DALFAMPRIDINE
     Indication: GAIT DISTURBANCE
     Dosage: 10 MG, BID
     Route: 048
     Dates: start: 201209, end: 20150930
  11. NORTRIPTYLINE [Concomitant]
     Active Substance: NORTRIPTYLINE
     Dosage: 25 MG
  12. FLEXERIL [CEFIXIME] [Concomitant]
     Dosage: UNK
  13. LEXAPRO [Concomitant]
     Active Substance: ESCITALOPRAM OXALATE
  14. BETASERON [Suspect]
     Active Substance: INTERFERON BETA-1B
     Indication: MULTIPLE SCLEROSIS
     Dosage: UNK
     Dates: start: 200808

REACTIONS (38)
  - Drug-induced liver injury [Not Recovered/Not Resolved]
  - Flushing [Not Recovered/Not Resolved]
  - Headache [Not Recovered/Not Resolved]
  - Alopecia [Unknown]
  - Uterine polyp [Unknown]
  - Urine abnormality [Not Recovered/Not Resolved]
  - Influenza like illness [Not Recovered/Not Resolved]
  - Tremor [Unknown]
  - Vomiting [Recovered/Resolved]
  - Multiple sclerosis relapse [Unknown]
  - Complication associated with device [Unknown]
  - Swelling [Not Recovered/Not Resolved]
  - Abdominal distension [Unknown]
  - Dizziness [Recovered/Resolved]
  - Abdominal pain [Unknown]
  - Weight increased [Unknown]
  - Insomnia [Unknown]
  - Fatigue [Not Recovered/Not Resolved]
  - Urinary tract infection [Unknown]
  - Asthenia [Unknown]
  - Carpal tunnel syndrome [Unknown]
  - Walking aid user [Not Recovered/Not Resolved]
  - Faeces discoloured [Unknown]
  - Sinusitis [Unknown]
  - Depression [Unknown]
  - Burning sensation [Not Recovered/Not Resolved]
  - Constipation [Recovered/Resolved]
  - Drug effect decreased [Unknown]
  - Visual impairment [Unknown]
  - Menorrhagia [Unknown]
  - Bronchitis [Not Recovered/Not Resolved]
  - Adverse event [Unknown]
  - Dysmenorrhoea [Unknown]
  - Amnesia [Unknown]
  - Gait disturbance [Not Recovered/Not Resolved]
  - Nausea [Recovered/Resolved]
  - Diarrhoea [Recovered/Resolved]
  - Product use issue [Unknown]

NARRATIVE: CASE EVENT DATE: 20121225
